FAERS Safety Report 8407133-3 (Version None)
Quarter: 2012Q2

REPORT INFORMATION
  Report Type: 
  Country: None (occurrence: None)
  Receive Date: 20120529
  Receipt Date: 20080402
  Transmission Date: 20120825
  Serious: Yes (Death)
  Sender: FDA-Public Use
  Company Number: 000441

PATIENT
  Age: 76 Year
  Sex: Male
  Weight: 55 kg

DRUGS (7)
  1. MUCOSTA (REBAMIPIDE) [Suspect]
  2. CALBLOCK (AZELNIDIPINE) [Suspect]
  3. RYTHMODAN R (DISOPYRAMIDE PHOSPHATE) [Concomitant]
  4. ALFAROL (ALFACALCIDOL) [Concomitant]
  5. PLETAL [Suspect]
     Indication: PERIPHERAL ARTERIAL OCCLUSIVE DISEASE
     Dosage: 50 MG, TID
     Route: 048
     Dates: start: 20070511, end: 20080229
  6. BUFFERIN [Concomitant]
  7. DORNER (BERAPROST SODIUM) [Suspect]

REACTIONS (2)
  - ACUTE MYOCARDIAL INFARCTION [None]
  - CARDIAC FAILURE [None]
